FAERS Safety Report 4322728-4 (Version None)
Quarter: 2004Q1

REPORT INFORMATION
  Report Type: 
  Country: None (occurrence: None)
  Receive Date: 20040324
  Receipt Date: 20040210
  Transmission Date: 20041129
  Serious: Yes (Hospitalization)
  Sender: FDA-Public Use
  Company Number: US-GLAXOSMITHKLINE-A0498181A

PATIENT
  Age: 41 Year
  Sex: Female
  Weight: 93.2 kg

DRUGS (6)
  1. WELLBUTRIN [Suspect]
     Indication: DEPRESSION
     Dosage: 50TAB PER DAY
     Route: 048
  2. PAXIL CR [Suspect]
     Indication: DEPRESSION
     Dosage: 37.5MG SEE DOSAGE TEXT
     Route: 048
     Dates: start: 20021001
  3. GEODON [Concomitant]
     Indication: AFFECT LABILITY
     Dosage: 80MG PER DAY
     Dates: start: 20031001
  4. NEURONTIN [Concomitant]
     Indication: MIGRAINE
     Dosage: 900MG PER DAY
     Dates: start: 20031001
  5. FOLATE [Concomitant]
     Indication: PROPHYLAXIS
     Dosage: 1MG PER DAY
     Dates: start: 20031224, end: 20040201
  6. PRENATAL VITAMIN [Concomitant]
     Indication: VITAMIN SUPPLEMENTATION
     Dates: start: 20031224

REACTIONS (5)
  - ABORTION SPONTANEOUS [None]
  - COMPLICATIONS OF MATERNAL EXPOSURE TO THERAPEUTIC DRUGS [None]
  - DRUG EXPOSURE DURING PREGNANCY [None]
  - OVERDOSE [None]
  - SUICIDE ATTEMPT [None]
